FAERS Safety Report 7122144-6 (Version None)
Quarter: 2010Q4

REPORT INFORMATION
  Report Type: 
  Country: None (occurrence: None)
  Receive Date: 20101122
  Receipt Date: 20101122
  Transmission Date: 20110411
  Serious: Yes (Hospitalization)
  Sender: FDA-Public Use
  Company Number: None

PATIENT
  Sex: Female
  Weight: 98.5 kg

DRUGS (15)
  1. CISPLATIN [Suspect]
     Dosage: 100 MG
     Dates: end: 20101110
  2. TAXOL [Suspect]
     Dosage: 270 MG
     Dates: end: 20101109
  3. APREPITANT [Concomitant]
  4. ASPIRIN [Concomitant]
  5. BENADRYL [Concomitant]
  6. CENTRUM [Concomitant]
  7. DEXAMETHASONE [Concomitant]
  8. FAMOTIDINE [Concomitant]
  9. FUROSEMIDE [Concomitant]
  10. KEPPRA [Concomitant]
  11. ATIVAN [Concomitant]
  12. LOTENSIN [Concomitant]
  13. ONDANSETRON [Concomitant]
  14. PROCHLORPERAZINE [Concomitant]
  15. ROSUVASTINE(CRESTOR) [Concomitant]

REACTIONS (7)
  - ASTHENIA [None]
  - DIZZINESS [None]
  - HYPOTENSION [None]
  - NAUSEA [None]
  - NEUTROPENIA [None]
  - SYNCOPE [None]
  - TACHYCARDIA [None]
